FAERS Safety Report 23657960 (Version 1)
Quarter: 2024Q1

REPORT INFORMATION
  Report Type: Other
  Country: FR (occurrence: FR)
  Receive Date: 20240321
  Receipt Date: 20240321
  Transmission Date: 20240410
  Serious: Yes (Death, Life-Threatening, Hospitalization)
  Sender: FDA-Public Use
  Company Number: FR-ASTELLAS-2024US008404

PATIENT
  Age: 80 Year
  Sex: Male

DRUGS (7)
  1. ISAVUCONAZOLE [Suspect]
     Active Substance: ISAVUCONAZOLE
     Indication: Aspergillus infection
     Dosage: UNK, UNKNOWN FREQ.
     Route: 065
     Dates: start: 202001
  2. TIGECYCLINE [Concomitant]
     Active Substance: TIGECYCLINE
     Indication: Acinetobacter infection
     Dosage: UNK UNK, UNKNOWN FREQ.
     Route: 065
     Dates: start: 202001
  3. LEVOFLOXACIN [Concomitant]
     Active Substance: LEVOFLOXACIN
     Indication: Acinetobacter infection
     Dosage: UNK UNK, UNKNOWN FREQ.
     Route: 065
     Dates: start: 202001
  4. MEROPENEM [Concomitant]
     Active Substance: MEROPENEM
     Indication: Acinetobacter infection
     Dosage: UNK UNK, UNKNOWN FREQ.
     Route: 065
     Dates: start: 202001
  5. COLISTIMETHATE SODIUM [Concomitant]
     Active Substance: COLISTIMETHATE SODIUM
     Indication: Acinetobacter infection
     Dosage: UNK UNK, UNKNOWN FREQ.
     Route: 065
     Dates: start: 202001
  6. VORICONAZOLE [Concomitant]
     Active Substance: VORICONAZOLE
     Indication: Aspergillus infection
     Dosage: UNK UNK, UNKNOWN FREQ.
     Route: 065
     Dates: start: 202001
  7. REMDESIVIR [Concomitant]
     Active Substance: REMDESIVIR
     Indication: Product used for unknown indication
     Dosage: UNK UNK, UNKNOWN FREQ.
     Route: 065
     Dates: start: 202001, end: 20200130

REACTIONS (1)
  - Drug ineffective [Fatal]

NARRATIVE: CASE EVENT DATE: 20200101
